FAERS Safety Report 7338349-5 (Version None)
Quarter: 2011Q1

REPORT INFORMATION
  Report Type: 
  Country: None (occurrence: None)
  Receive Date: 20110308
  Receipt Date: 20110301
  Transmission Date: 20110831
  Serious: Yes (Death)
  Sender: FDA-Public Use
  Company Number: PT-BRISTOL-MYERS SQUIBB COMPANY-15583313

PATIENT
  Age: 55 Year
  Sex: Male
  Weight: 91 kg

DRUGS (2)
  1. CISPLATIN [Suspect]
     Indication: NON-SMALL CELL LUNG CANCER
     Dosage: ON 17-FEB-2011 STUDY THERAPY WAS HELD. ON 21FEB2011 WITHDRAWN FROM STUDY.
     Route: 042
     Dates: start: 20101026, end: 20110127
  2. GEMCITABINE HCL [Suspect]
     Indication: NON-SMALL CELL LUNG CANCER
     Dosage: ON 17-FEB-2011 STUDY THERAPY WAS HELD. ON 21FEB2011 WITHDRAWN FROM STUDY.
     Route: 042
     Dates: start: 20101026, end: 20110203

REACTIONS (1)
  - PULMONARY HYPERTENSION [None]
